FAERS Safety Report 6122182-6 (Version None)
Quarter: 2009Q1

REPORT INFORMATION
  Report Type: 
  Country: None (occurrence: None)
  Receive Date: 20090318
  Receipt Date: 20090310
  Transmission Date: 20090719
  Serious: Yes (Hospitalization)
  Sender: FDA-Public Use
  Company Number: CA-CELGENEUS-163-C5013-09030612

PATIENT
  Sex: Male
  Weight: 130.9 kg

DRUGS (11)
  1. CC-5013 [Suspect]
     Route: 048
     Dates: start: 20081209, end: 20081223
  2. CC-5013 [Suspect]
     Dosage: 2.5 MG QOD
     Route: 048
     Dates: start: 20081229, end: 20090202
  3. CC-5013 [Suspect]
     Route: 048
     Dates: start: 20090203, end: 20090302
  4. NEUPOGEN [Concomitant]
     Indication: NEUTROPENIA
     Route: 065
  5. ALLOPURINOL [Concomitant]
     Indication: PROPHYLAXIS
     Route: 048
     Dates: start: 20081209
  6. TOPROL-XL [Concomitant]
     Route: 048
     Dates: start: 20080101
  7. LISINOPRIL [Concomitant]
     Indication: HYPERTENSION
     Route: 048
     Dates: start: 20080101
  8. ASCORBIC ACID [Concomitant]
     Route: 048
     Dates: start: 20080101
  9. METAMUCIL [Concomitant]
     Indication: CONSTIPATION PROPHYLAXIS
     Route: 048
     Dates: start: 20080101
  10. NEUPOGEN [Concomitant]
     Indication: LEUKOPENIA
     Route: 051
     Dates: start: 20081117, end: 20081119
  11. NEUPOGEN [Concomitant]
     Indication: NEUTROPENIA
     Route: 051
     Dates: start: 20081223

REACTIONS (1)
  - PROGRESSIVE MULTIFOCAL LEUKOENCEPHALOPATHY [None]
